FAERS Safety Report 7821703-2 (Version None)
Quarter: 2011Q4

REPORT INFORMATION
  Report Type: 
  Country: None (occurrence: None)
  Receive Date: 20111018
  Receipt Date: 20101130
  Transmission Date: 20120403
  Serious: No
  Sender: FDA-Public Use
  Company Number: US-ASTRAZENECA-2010SE57013

PATIENT
  Age: 88 Year
  Sex: Female
  Weight: 59 kg

DRUGS (2)
  1. SYMBICORT [Suspect]
     Indication: CHRONIC OBSTRUCTIVE PULMONARY DISEASE
     Dosage: 160/4.5  2 PUFFS AM 1
     Route: 055
     Dates: start: 20090101
  2. SYMBICORT [Suspect]
     Indication: ASTHMA
     Dosage: 160/4.5  2 PUFFS AM 1
     Route: 055
     Dates: start: 20090101

REACTIONS (1)
  - VISUAL IMPAIRMENT [None]
